FAERS Safety Report 15010943 (Version 1)
Quarter: 2018Q2

REPORT INFORMATION
  Report Type: Spontaneous
  Country: US (occurrence: US)
  Receive Date: 20180614
  Receipt Date: 20180614
  Transmission Date: 20180711
  Serious: Yes (Hospitalization)
  Sender: FDA-Public Use
  Company Number: US-ABBVIE-18K-163-2385584-00

PATIENT
  Age: 50 Year
  Sex: Male
  Weight: 74 kg

DRUGS (1)
  1. HUMIRA [Suspect]
     Active Substance: ADALIMUMAB
     Indication: PSORIATIC ARTHROPATHY
     Route: 058
     Dates: start: 20180308, end: 20180418

REACTIONS (7)
  - Renal failure [Recovered/Resolved]
  - Skin indentation [Recovered/Resolved]
  - Bowel movement irregularity [Recovered/Resolved]
  - Weight decreased [Recovering/Resolving]
  - Hypersomnia [Recovering/Resolving]
  - Asthenia [Recovered/Resolved with Sequelae]
  - Rectal discharge [Recovered/Resolved]

NARRATIVE: CASE EVENT DATE: 20180501
